FAERS Safety Report 15144613 (Version 2)
Quarter: 2018Q3

REPORT INFORMATION
  Report Type: Spontaneous
  Country: JP (occurrence: JP)
  Receive Date: 20180713
  Receipt Date: 20180730
  Transmission Date: 20181010
  Serious: Yes (Hospitalization)
  Sender: FDA-Public Use
  Company Number: JP-ELI_LILLY_AND_COMPANY-JP201807004892

PATIENT
  Age: 72 Year
  Sex: Male
  Weight: 74 kg

DRUGS (11)
  1. DULOXETINE HYDROCHLORIDE. [Suspect]
     Active Substance: DULOXETINE HYDROCHLORIDE
     Dosage: 60 MG, DAILY
     Route: 048
     Dates: start: 20180608, end: 20180613
  2. EQUA [Concomitant]
     Active Substance: VILDAGLIPTIN
     Indication: DIABETES MELLITUS
     Dosage: 50 MG, BID
     Route: 048
  3. DULOXETINE HYDROCHLORIDE. [Suspect]
     Active Substance: DULOXETINE HYDROCHLORIDE
     Dosage: 40 MG, DAILY
     Route: 048
     Dates: start: 20180601, end: 20180607
  4. PITAVASTATIN CALCIUM [Concomitant]
     Active Substance: PITAVASTATIN CALCIUM
     Dosage: 2 MG, DAILY
     Route: 048
  5. PERSANTIN [Concomitant]
     Active Substance: DIPYRIDAMOLE
     Dosage: 150 MG, BID
     Route: 048
  6. DULOXETINE HYDROCHLORIDE. [Suspect]
     Active Substance: DULOXETINE HYDROCHLORIDE
     Indication: MERALGIA PARAESTHETICA
     Dosage: 20 MG, DAILY
     Route: 048
     Dates: start: 20180525, end: 20180531
  7. OLMETEC [Concomitant]
     Active Substance: OLMESARTAN MEDOXOMIL
     Dosage: 20 MG, DAILY
     Route: 048
  8. METGLUCO [Concomitant]
     Active Substance: METFORMIN HYDROCHLORIDE
     Dosage: 250 MG, BID
     Route: 048
  9. TOPILORIC [Concomitant]
     Active Substance: TOPIROXOSTAT
     Dosage: 40 MG, BID
     Route: 048
  10. VOGLIBOSE [Concomitant]
     Active Substance: VOGLIBOSE
     Dosage: 0.3 MG, TID
     Route: 048
  11. HERLAT [Concomitant]
     Dosage: 10 MG, DAILY
     Route: 048

REACTIONS (2)
  - Hyperkalaemia [Recovering/Resolving]
  - Renal failure [Recovering/Resolving]

NARRATIVE: CASE EVENT DATE: 20180608
